FAERS Safety Report 7518648-4 (Version None)
Quarter: 2011Q2

REPORT INFORMATION
  Report Type: 
  Country: None (occurrence: None)
  Receive Date: 20110523
  Receipt Date: 20110509
  Transmission Date: 20111010
  Serious: Yes (Hospitalization, Other)
  Sender: FDA-Public Use
  Company Number: 2011MA005601

PATIENT
  Age: 34 Year
  Sex: Male

DRUGS (4)
  1. CLOBAZAM [Concomitant]
  2. MESALAMINE [Concomitant]
  3. FEVERALL [Suspect]
     Indication: BACK PAIN
     Dosage: 2500 MG; OD; PO
     Route: 048
  4. CARBAMAZEPINE [Concomitant]

REACTIONS (11)
  - DIPLOPIA [None]
  - TUBULOINTERSTITIAL NEPHRITIS [None]
  - BALANCE DISORDER [None]
  - RENAL FAILURE [None]
  - ACUTE HEPATIC FAILURE [None]
  - NYSTAGMUS [None]
  - TOXICITY TO VARIOUS AGENTS [None]
  - GAIT DISTURBANCE [None]
  - CEREBELLAR SYNDROME [None]
  - TREMOR [None]
  - ABDOMINAL PAIN [None]
